FAERS Safety Report 8613895 (Version 5)
Quarter: 2013Q1

REPORT INFORMATION
  Report Type: Spontaneous
  Country: DE (occurrence: DE)
  Receive Date: 20120614
  Receipt Date: 20130128
  Transmission Date: 20140127
  Serious: Yes (Hospitalization)
  Sender: FDA-Public Use
  Company Number: DE-AMGEN-DEUSP2012036223

PATIENT
  Sex: Male

DRUGS (16)
  1. NEULASTA [Suspect]
     Indication: B-CELL LYMPHOMA
     Dosage: 6 MG, UNK
     Route: 058
     Dates: start: 20120420
  2. RITUXIMAB [Suspect]
     Indication: B-CELL LYMPHOMA
     Dosage: 800 MG, Q2WK
     Route: 042
     Dates: start: 20120416
  3. RITUXIMAB [Suspect]
     Dosage: REDUCED DOSE
     Route: 042
     Dates: start: 20120605
  4. CYCLOPHOSPHAMIDE [Suspect]
     Indication: B-CELL LYMPHOMA
     Dosage: 1640 MG, Q2WK
     Route: 042
     Dates: start: 20120417
  5. CYCLOPHOSPHAMIDE [Suspect]
     Dosage: REDUCED DOSE
     Route: 042
     Dates: start: 20120605
  6. DOXORUBICIN [Suspect]
     Indication: B-CELL LYMPHOMA
     Dosage: 110 MG, Q2WK
     Route: 042
     Dates: start: 20120417
  7. DOXORUBICIN [Suspect]
     Dosage: REDUCED DOSE
     Route: 042
     Dates: start: 20120605
  8. VINCRISTINE [Suspect]
     Indication: B-CELL LYMPHOMA
     Dosage: 2 MG, Q2WK
     Route: 042
     Dates: start: 20120417
  9. VINCRISTINE [Suspect]
     Dosage: REDUCED DOSE
     Route: 042
     Dates: start: 20120605
  10. PREDNISONE [Concomitant]
     Indication: B-CELL LYMPHOMA
     Dosage: 100 MG, UNK
     Route: 042
     Dates: start: 20120417
  11. PREDNISONE [Concomitant]
     Dosage: REDUCED DOSE
     Dates: start: 20120605
  12. LEVOTHYROXINE SODIUM [Concomitant]
     Indication: HYPERTHYROIDISM
     Dosage: 100 MG, UNK
     Route: 048
  13. DIGITOXIN [Concomitant]
     Dosage: 1 MG, UNK
     Route: 048
  14. SIMVASTATIN [Concomitant]
     Indication: HYPERLIPIDAEMIA
     Dosage: 20 MG, UNK
     Route: 048
  15. BISOPROLOL [Concomitant]
     Indication: HYPERTENSION
     Dosage: 5 MG, UNK
     Route: 048
  16. AMIODARONE HYDROCHLORIDE [Concomitant]
     Indication: TACHYARRHYTHMIA
     Dosage: 200 MG, UNK
     Route: 048
     Dates: start: 20120505

REACTIONS (6)
  - Palmar-plantar erythrodysaesthesia syndrome [Recovered/Resolved]
  - Pain of skin [Recovered/Resolved]
  - Dehydration [Recovered/Resolved]
  - Stomatitis [Recovered/Resolved]
  - Diarrhoea [Recovered/Resolved]
  - Gastrointestinal inflammation [Recovered/Resolved]
